FAERS Safety Report 10340994 (Version 2)
Quarter: 2014Q3

REPORT INFORMATION
  Report Type: Spontaneous
  Country: US (occurrence: US)
  Receive Date: 20140724
  Receipt Date: 20140724
  Transmission Date: 20150326
  Serious: No
  Sender: FDA-Public Use
  Company Number: US-MYLANLABS-2013S1021909

PATIENT
  Age: 71 Year
  Sex: Female
  Weight: 68.04 kg

DRUGS (2)
  1. LEVOTHYROXINE SODIUM TABLETS, USP [Suspect]
     Active Substance: LEVOTHYROXINE SODIUM
     Indication: THYROIDECTOMY
     Route: 048
     Dates: start: 201306, end: 201309
  2. JINTELI [Concomitant]
     Active Substance: ETHINYL ESTRADIOL\NORETHINDRONE ACETATE

REACTIONS (3)
  - Blood thyroid stimulating hormone decreased [Recovered/Resolved]
  - Bone pain [Recovered/Resolved]
  - Drug effect decreased [Recovered/Resolved]

NARRATIVE: CASE EVENT DATE: 201306
